FAERS Safety Report 16759614 (Version 1)
Quarter: 2019Q3

REPORT INFORMATION
  Report Type: Spontaneous
  Country: US (occurrence: US)
  Receive Date: 20190830
  Receipt Date: 20190830
  Transmission Date: 20191005
  Serious: Yes (Other)
  Sender: FDA-Public Use
  Company Number: None

PATIENT
  Age: 32 Year
  Sex: Female

DRUGS (1)
  1. BUPRENORPHINE/NALOXONE TABLETS [Suspect]
     Active Substance: BUPRENORPHINE\NALOXONE
     Indication: DRUG DEPENDENCE
     Route: 060
     Dates: start: 20190528

REACTIONS (5)
  - Nausea [None]
  - Drug ineffective [None]
  - Product solubility abnormal [None]
  - Drug dependence [None]
  - Tongue ulceration [None]

NARRATIVE: CASE EVENT DATE: 20190814
